FAERS Safety Report 5848225-2 (Version None)
Quarter: 2008Q3

REPORT INFORMATION
  Report Type: 
  Country: None (occurrence: None)
  Receive Date: 20080818
  Receipt Date: 20080812
  Transmission Date: 20090109
  Serious: Yes (Other)
  Sender: FDA-Public Use
  Company Number: D0058356A

PATIENT
  Sex: Male

DRUGS (1)
  1. VIANI MITE [Suspect]
     Dosage: 150MCG UNKNOWN
     Route: 055
     Dates: start: 20050101

REACTIONS (2)
  - INTRAOCULAR PRESSURE INCREASED [None]
  - OPTIC NERVE DISORDER [None]
